FAERS Safety Report 11038766 (Version 3)
Quarter: 2015Q3

REPORT INFORMATION
  Report Type: Spontaneous
  Country: US (occurrence: US)
  Receive Date: 20150416
  Receipt Date: 20150709
  Transmission Date: 20151125
  Serious: Yes (Death, Hospitalization)
  Sender: FDA-Public Use
  Company Number: US-PFIZER INC-2015127765

PATIENT
  Age: 48 Year
  Sex: Female

DRUGS (1)
  1. IBRANCE [Suspect]
     Active Substance: PALBOCICLIB
     Indication: BREAST CANCER METASTATIC
     Dosage: 125 MG, CYCLIC (DAILY, 21 DAYS ON/7 DAY OFF)
     Route: 048
     Dates: start: 20150316, end: 20150405

REACTIONS (4)
  - Dyspnoea [Unknown]
  - Breast cancer metastatic [Fatal]
  - Disease progression [Fatal]
  - Fluid retention [Unknown]
